FAERS Safety Report 18700236 (Version 1)
Quarter: 2021Q1

REPORT INFORMATION
  Report Type: Report from Study
  Country: CA (occurrence: CA)
  Receive Date: 20210105
  Receipt Date: 20210105
  Transmission Date: 20210419
  Serious: Yes (Hospitalization, Other)
  Sender: FDA-Public Use
  Company Number: CA-ACCORD-213328

PATIENT
  Age: 64 Year
  Sex: Male
  Weight: 92 kg

DRUGS (7)
  1. BETADERM [Concomitant]
     Active Substance: BETAMETHASONE VALERATE
     Indication: PSORIASIS
     Dosage: 2 EVERY 1 DAYS
     Route: 065
  2. IXEKIZUMABUM [Concomitant]
     Active Substance: IXEKIZUMAB
     Indication: PSORIASIS
  3. VALPROIC ACID. [Concomitant]
     Active Substance: VALPROIC ACID
     Indication: PRODUCT USED FOR UNKNOWN INDICATION
  4. METHOTREXATE. [Suspect]
     Active Substance: METHOTREXATE
     Indication: PRODUCT USED FOR UNKNOWN INDICATION
     Route: 065
  5. GUSELKUMAB [Suspect]
     Active Substance: GUSELKUMAB
     Indication: PRODUCT USED FOR UNKNOWN INDICATION
     Route: 065
  6. COSENTYX [Suspect]
     Active Substance: SECUKINUMAB
     Indication: PSORIASIS
     Route: 058
  7. COSENTYX [Suspect]
     Active Substance: SECUKINUMAB
     Indication: PSORIASIS
     Route: 065

REACTIONS (9)
  - Pelvic fracture [Recovered/Resolved]
  - Back pain [Recovered/Resolved]
  - Hypokinesia [Recovered/Resolved]
  - Facial bones fracture [Recovered/Resolved]
  - Drug ineffective [Unknown]
  - Fall [Unknown]
  - Muscle strain [Recovered/Resolved]
  - Psoriasis [Recovered/Resolved]
  - Craniocerebral injury [Recovered/Resolved]
